FAERS Safety Report 10688594 (Version 1)
Quarter: 2015Q1

REPORT INFORMATION
  Report Type: Spontaneous
  Country: DK (occurrence: FR)
  Receive Date: 20150102
  Receipt Date: 20150102
  Transmission Date: 20150720
  Serious: Yes (Hospitalization, Congenital Anomaly)
  Sender: FDA-Public Use
  Company Number: FR-FRI-1000073416

PATIENT
  Age: 0 Day
  Sex: Female
  Weight: 3.67 kg

DRUGS (7)
  1. ATARAX [Suspect]
     Active Substance: HYDROXYZINE\HYDROXYZINE HYDROCHLORIDE
     Dosage: 90 MG
     Route: 064
     Dates: end: 20140902
  2. NORDAZ [Suspect]
     Active Substance: NORDAZEPAM
     Dosage: 15 MG
     Route: 064
     Dates: end: 20140902
  3. LEPTICUR [Concomitant]
     Active Substance: TROPATEPINE HYDROCHLORIDE
     Route: 064
  4. ESCITALOPRAM [Suspect]
     Active Substance: ESCITALOPRAM OXALATE
     Dosage: 20 MG
     Route: 064
     Dates: end: 20140902
  5. RISPERDAL [Suspect]
     Active Substance: RISPERIDONE
     Dosage: 2 MG
     Route: 064
     Dates: end: 20140902
  6. AVLOCARDYL [Concomitant]
     Active Substance: PROPRANOLOL HYDROCHLORIDE
     Route: 064
  7. IMOVANE [Suspect]
     Active Substance: ZOPICLONE
     Dosage: NOT SPECIFIED
     Route: 064
     Dates: end: 20140902

REACTIONS (3)
  - Hypotonia [Recovered/Resolved]
  - Somnolence [Recovered/Resolved]
  - Foetal exposure during pregnancy [Recovered/Resolved]

NARRATIVE: CASE EVENT DATE: 20140902
